FAERS Safety Report 7755355-7 (Version None)
Quarter: 2011Q3

REPORT INFORMATION
  Report Type: 
  Country: None (occurrence: None)
  Receive Date: 20110916
  Receipt Date: 20110906
  Transmission Date: 20111222
  Serious: Yes (Death, Hospitalization)
  Sender: FDA-Public Use
  Company Number: US-JNJFOC-20110507124

PATIENT
  Sex: Male

DRUGS (17)
  1. ABIRATERONE ACETATE [Suspect]
     Indication: PROSTATE CANCER METASTATIC
     Route: 048
     Dates: start: 20110316, end: 20110504
  2. ABIRATERONE ACETATE [Suspect]
     Route: 048
     Dates: start: 20110114, end: 20110228
  3. ABIRATERONE ACETATE [Suspect]
     Route: 048
     Dates: start: 20110310, end: 20110313
  4. PREDNISONE [Suspect]
     Indication: PROSTATE CANCER METASTATIC
     Route: 048
     Dates: start: 20110429, end: 20110529
  5. GOSERELIN [Concomitant]
     Indication: CANCER HORMONAL THERAPY
     Route: 058
     Dates: start: 20090226
  6. FLUOXETINE [Concomitant]
     Indication: DEPRESSION
     Route: 048
     Dates: start: 20050101
  7. NAPROXEN (ALEVE) [Concomitant]
     Indication: BACK PAIN
     Route: 048
     Dates: start: 20101101
  8. RED BLOOD CELLS [Concomitant]
     Indication: ANAEMIA
     Route: 042
     Dates: start: 20110511, end: 20110511
  9. PREDNISONE [Suspect]
     Route: 048
     Dates: start: 20090226
  10. PREDNISONE [Suspect]
     Route: 048
     Dates: start: 20110114, end: 20110428
  11. SODIUM CHLORIDE [Concomitant]
     Indication: DEHYDRATION
     Route: 042
     Dates: start: 20110324
  12. RED BLOOD CELLS [Concomitant]
     Route: 042
     Dates: start: 20110425, end: 20110425
  13. DECADRON [Concomitant]
     Indication: FATIGUE
     Route: 042
     Dates: start: 20110324
  14. GOSERELIN [Concomitant]
     Dosage: 10.8 UNITS AND FREQUENCY NOT SPECIFIED
     Route: 058
     Dates: start: 20061030
  15. PREVACID [Concomitant]
     Indication: DYSPEPSIA
     Route: 048
     Dates: start: 20101210
  16. CALCIUM WITH VITAMIN D [Concomitant]
     Indication: PROPHYLAXIS
     Route: 048
     Dates: start: 20110210
  17. ZOMETA [Concomitant]
     Indication: PROSTATE CANCER
     Dosage: 4.0 UNITS AND FREQUENCY UNSPECIFIED
     Route: 065
     Dates: start: 20080926

REACTIONS (1)
  - FAILURE TO THRIVE [None]
